FAERS Safety Report 5585397-1 (Version None)
Quarter: 2008Q1

REPORT INFORMATION
  Report Type: 
  Country: None (occurrence: None)
  Receive Date: 20080109
  Receipt Date: 20071229
  Transmission Date: 20080703
  Serious: Yes (Hospitalization)
  Sender: FDA-Public Use
  Company Number: GB-ROCHE-539091

PATIENT
  Age: 50 Year
  Sex: Female
  Weight: 80.7 kg

DRUGS (3)
  1. ORLISTAT [Suspect]
     Indication: OBESITY
     Route: 048
     Dates: start: 20070801, end: 20071025
  2. SERETIDE [Concomitant]
     Indication: ASTHMA
     Route: 055
     Dates: start: 20020101
  3. ALBUTEROL [Concomitant]
     Indication: ASTHMA
     Dosage: DOSAGE REPORTED: AS REQUIRED.
     Route: 055
     Dates: start: 20020101

REACTIONS (1)
  - PULMONARY EMBOLISM [None]
